FAERS Safety Report 8816622 (Version 1)
Quarter: 2012Q4

REPORT INFORMATION
  Report Type: Spontaneous
  Country: US (occurrence: None)
  Receive Date: 20121001
  Receipt Date: 20121001
  Transmission Date: 20130627
  Serious: No
  Sender: FDA-Public Use
  Company Number: None

PATIENT
  Age: 35 Year
  Sex: Female
  Weight: 115.9 kg

DRUGS (1)
  1. TOPIRAMATE [Suspect]
     Indication: MIGRAINE
     Dosage: 25mg 2TABS AM  1 TAB PM  PO
     Dates: start: 201207

REACTIONS (5)
  - Erythema [None]
  - Rash [None]
  - Rash [None]
  - Pruritus [None]
  - Feeling hot [None]
